FAERS Safety Report 5333708-4 (Version None)
Quarter: 2007Q2

REPORT INFORMATION
  Report Type: 
  Country: None (occurrence: None)
  Receive Date: 20070524
  Receipt Date: 20070517
  Transmission Date: 20071010
  Serious: Yes (Other)
  Sender: FDA-Public Use
  Company Number: B0471294A

PATIENT
  Sex: Male

DRUGS (1)
  1. LEUKERAN [Suspect]
     Dosage: 10MG PER DAY
     Route: 048
     Dates: end: 20070101

REACTIONS (2)
  - FEELING ABNORMAL [None]
  - PANCYTOPENIA [None]
